FAERS Safety Report 16807391 (Version 1)
Quarter: 2019Q3

REPORT INFORMATION
  Report Type: Spontaneous
  Country: US (occurrence: US)
  Receive Date: 20190913
  Receipt Date: 20190913
  Transmission Date: 20191005
  Serious: Yes (Other)
  Sender: FDA-Public Use
  Company Number: US-SHIRE-US201925064

PATIENT
  Age: 52 Year
  Sex: Female
  Weight: 50 kg

DRUGS (1)
  1. GATTEX [Suspect]
     Active Substance: TEDUGLUTIDE\WATER
     Indication: SHORT-BOWEL SYNDROME
     Dosage: 0.25 MILLILITER, 1X/DAY:QD
     Route: 058
     Dates: start: 20190610

REACTIONS (2)
  - Intestinal obstruction [Unknown]
  - Malaise [Unknown]

NARRATIVE: CASE EVENT DATE: 20190814
